FAERS Safety Report 15711342 (Version 2)
Quarter: 2019Q1

REPORT INFORMATION
  Report Type: Spontaneous
  Country: FR (occurrence: FR)
  Receive Date: 20181211
  Receipt Date: 20190128
  Transmission Date: 20190417
  Serious: Yes (Hospitalization, Disabling, Other)
  Sender: FDA-Public Use
  Company Number: FR-TEVA-2018-FR-986779

PATIENT
  Sex: Female

DRUGS (10)
  1. ESTRADIOL (ESTRADIOL) [Suspect]
     Active Substance: ESTRADIOL
     Indication: ACNE
     Dosage: .5 DOSAGE FORMS DAILY; FOR 21 DAYS PER MONTH
     Route: 048
     Dates: start: 2008
  2. ESTRADIOL (ESTRADIOL) [Suspect]
     Active Substance: ESTRADIOL
     Route: 048
     Dates: start: 20070528, end: 20170920
  3. ESTRADIOL (ESTRADIOL) [Suspect]
     Active Substance: ESTRADIOL
     Indication: ALOPECIA
     Route: 048
     Dates: end: 20170920
  4. CYPROTERONE ACETATE/ETHINYLESTRADIOL (CYPROTERONE ACETAE) [Suspect]
     Active Substance: CYPROTERONE ACETATE\ETHINYL ESTRADIOL
     Indication: ALOPECIA
     Route: 065
  5. ESTRADIOL. [Suspect]
     Active Substance: ESTRADIOL
     Dosage: 1 DOSAGE FORMS DAILY;
     Route: 048
     Dates: start: 2008, end: 20170920
  6. ESTRADIOL (ESTRADIOL) [Suspect]
     Active Substance: ESTRADIOL
     Route: 048
     Dates: start: 20161124
  7. ESTRADIOL (ESTRADIOL) [Suspect]
     Active Substance: ESTRADIOL
     Indication: ALOPECIA
     Route: 048
     Dates: start: 20130816
  8. ESTRADIOL (ESTRADIOL) [Suspect]
     Active Substance: ESTRADIOL
     Route: 048
     Dates: start: 20100820
  9. ESTRADIOL (ESTRADIOL) [Suspect]
     Active Substance: ESTRADIOL
     Route: 065
     Dates: start: 20090705
  10. ESTRADIOL (ESTRADIOL) [Suspect]
     Active Substance: ESTRADIOL
     Dosage: .5 DOSAGE FORMS DAILY; FOR 21 DAYS
     Route: 048
     Dates: start: 20140818

REACTIONS (22)
  - Disorientation [Unknown]
  - Paraesthesia [Not Recovered/Not Resolved]
  - Meningioma [Not Recovered/Not Resolved]
  - Cognitive disorder [Unknown]
  - Aphasia [Unknown]
  - Facial paralysis [Not Recovered/Not Resolved]
  - Coordination abnormal [Not Recovered/Not Resolved]
  - Weight increased [Not Recovered/Not Resolved]
  - Dysarthria [Not Recovered/Not Resolved]
  - Hemiparaesthesia [Not Recovered/Not Resolved]
  - Muscular weakness [Not Recovered/Not Resolved]
  - Muscular weakness [Not Recovered/Not Resolved]
  - Eye haematoma [Unknown]
  - Fatigue [Not Recovered/Not Resolved]
  - Balance disorder [Not Recovered/Not Resolved]
  - Gait disturbance [Not Recovered/Not Resolved]
  - Hemiplegia [Unknown]
  - Diplopia [Not Recovered/Not Resolved]
  - Language disorder [Unknown]
  - Hemiplegia [Not Recovered/Not Resolved]
  - Nervous system disorder [Unknown]
  - Memory impairment [Unknown]

NARRATIVE: CASE EVENT DATE: 2017
